FAERS Safety Report 21622250 (Version 1)
Quarter: 2022Q4

REPORT INFORMATION
  Report Type: Spontaneous
  Country: US (occurrence: None)
  Receive Date: 20221119
  Receipt Date: 20221119
  Transmission Date: 20230113
  Serious: Yes (Death)
  Sender: FDA-Public Use
  Company Number: None

PATIENT
  Age: 74 Year
  Sex: Male

DRUGS (11)
  1. DALFAMPRIDINE [Suspect]
     Active Substance: DALFAMPRIDINE
     Indication: Multiple sclerosis
     Dosage: FREQUENCY : TWICE A DAY;?
     Route: 048
  2. ASPIRIN [Concomitant]
     Active Substance: ASPIRIN
  3. ATORVASTATIN [Concomitant]
     Active Substance: ATORVASTATIN
  4. DULOXETINE [Concomitant]
     Active Substance: DULOXETINE
  5. LEVETIRACETAM [Concomitant]
     Active Substance: LEVETIRACETAM
  6. LEVOTHYROXINE [Concomitant]
     Active Substance: LEVOTHYROXINE
  7. VITAMINS [Concomitant]
     Active Substance: VITAMINS
  8. NOVOLOG [Concomitant]
     Active Substance: INSULIN ASPART
  9. VITAMIN D [Concomitant]
     Active Substance: VITAMIN D NOS
  10. VUMERITY [Concomitant]
     Active Substance: DIROXIMEL FUMARATE
  11. ANORO ELLIPTA [Concomitant]
     Active Substance: UMECLIDINIUM BROMIDE\VILANTEROL TRIFENATATE

REACTIONS (1)
  - Death [None]

NARRATIVE: CASE EVENT DATE: 20221110
